FAERS Safety Report 23316412 (Version 3)
Quarter: 2024Q4

REPORT INFORMATION
  Report Type: Spontaneous
  Country: US (occurrence: US)
  Receive Date: 20231219
  Receipt Date: 20241017
  Transmission Date: 20250115
  Serious: No
  Sender: ROCHE
  Company Number: US-ROCHE-3370034

PATIENT
  Age: 29 Year
  Sex: Male
  Weight: 155.58 kg

DRUGS (3)
  1. HEMLIBRA [Suspect]
     Active Substance: EMICIZUMAB-KXWH
     Indication: Factor VIII deficiency
     Route: 058
     Dates: start: 202306
  2. HEMLIBRA [Suspect]
     Active Substance: EMICIZUMAB-KXWH
     Route: 065
     Dates: start: 202211
  3. HEMLIBRA [Suspect]
     Active Substance: EMICIZUMAB-KXWH
     Dosage: STRENGTH 150MG/ML AND 105MG/0.7ML
     Route: 058
     Dates: start: 202212

REACTIONS (3)
  - Haemorrhage [Recovered/Resolved]
  - Skin laceration [Unknown]
  - Weight decreased [Unknown]

NARRATIVE: CASE EVENT DATE: 20230524
